FAERS Safety Report 4849947-2 (Version None)
Quarter: 2005Q4

REPORT INFORMATION
  Report Type: 
  Country: None (occurrence: None)
  Receive Date: 20051101
  Receipt Date: 20050818
  Transmission Date: 20060501
  Serious: Yes (Other)
  Sender: FDA-Public Use
  Company Number: 200511679BBE

PATIENT
  Age: 59 Year
  Sex: Male

DRUGS (2)
  1. GAMUNEX [Suspect]
     Indication: GUILLAIN-BARRE SYNDROME
     Dates: start: 20050712
  2. GAMUNEX [Suspect]
     Dates: start: 20050712

REACTIONS (4)
  - ANAPHYLACTOID REACTION [None]
  - DYSPNOEA [None]
  - HYPERHIDROSIS [None]
  - OXYGEN SATURATION DECREASED [None]
